FAERS Safety Report 18337078 (Version 1)
Quarter: 2020Q4

REPORT INFORMATION
  Report Type: Spontaneous
  Country: US (occurrence: US)
  Receive Date: 20201002
  Receipt Date: 20201002
  Transmission Date: 20210113
  Serious: No
  Sender: FDA-Public Use
  Company Number: US-MELINTA THERAPEUTICS, INC-US-MLNT-20-00064

PATIENT
  Sex: Male

DRUGS (4)
  1. ORBACTIV [Suspect]
     Active Substance: ORITAVANCIN
     Indication: CELLULITIS
     Route: 041
  2. LEVAQUIN [Concomitant]
     Active Substance: LEVOFLOXACIN
     Indication: ENTEROCOCCAL INFECTION
  3. LEVAQUIN [Concomitant]
     Active Substance: LEVOFLOXACIN
     Indication: PSEUDOMONAS INFECTION
     Dosage: NOT PROVIDED.
  4. ORBACTIV [Suspect]
     Active Substance: ORITAVANCIN
     Indication: DIABETIC FOOT INFECTION

REACTIONS (2)
  - Diarrhoea [Unknown]
  - Dizziness [Unknown]
